FAERS Safety Report 14139301 (Version 1)
Quarter: 2017Q4

REPORT INFORMATION
  Report Type: Report from Study
  Country: None (occurrence: BR)
  Receive Date: 20171028
  Receipt Date: 20171028
  Transmission Date: 20180321
  Serious: Yes (Disabling, Other)
  Sender: FDA-Public Use
  Company Number: BR-ABBVIE-17K-020-2138611-00

PATIENT
  Age: 79 Year
  Sex: Female
  Weight: 80 kg

DRUGS (1)
  1. HUMIRA [Suspect]
     Active Substance: ADALIMUMAB
     Indication: RHEUMATOID ARTHRITIS
     Route: 058
     Dates: start: 20170620, end: 20170801

REACTIONS (10)
  - Immunodeficiency [Not Recovered/Not Resolved]
  - Vision blurred [Recovered/Resolved]
  - Intraocular pressure increased [Unknown]
  - Cataract operation complication [Unknown]
  - Keratitis [Unknown]
  - Genital abscess [Unknown]
  - Purulent discharge [Unknown]
  - Genital abscess [Recovered/Resolved]
  - Vitreous floaters [Recovering/Resolving]
  - Blindness [Recovered/Resolved]

NARRATIVE: CASE EVENT DATE: 201708
